FAERS Safety Report 6960189-7 (Version None)
Quarter: 2010Q3

REPORT INFORMATION
  Report Type: 
  Country: None (occurrence: None)
  Receive Date: 20100901
  Receipt Date: 20100819
  Transmission Date: 20110219
  Serious: Yes (Other)
  Sender: FDA-Public Use
  Company Number: PHHY2010CH55006

PATIENT
  Age: 68 Year
  Sex: Male

DRUGS (8)
  1. AREDIA [Suspect]
     Dosage: UNK
     Route: 051
     Dates: start: 20060101, end: 20100201
  2. EVEROLIMUS [Concomitant]
     Dosage: UNK
     Dates: start: 20100101
  3. NITRODERM [Concomitant]
     Indication: MYOCARDIAL INFARCTION
     Dosage: UNK
  4. AMLODIPINE [Concomitant]
     Dosage: UNK
  5. NEXIUM [Concomitant]
     Dosage: UNK
  6. LORAZEPAM [Concomitant]
     Dosage: UNK
  7. NOZINAN [Concomitant]
     Dosage: UNK
  8. LUDIOMIL [Concomitant]
     Dosage: UNK

REACTIONS (1)
  - OSTEONECROSIS OF JAW [None]
